FAERS Safety Report 23731924 (Version 1)
Quarter: 2024Q2

REPORT INFORMATION
  Report Type: Spontaneous
  Country: US (occurrence: None)
  Receive Date: 20240410
  Receipt Date: 20240410
  Transmission Date: 20240716
  Serious: No
  Sender: FDA-Public Use
  Company Number: None

PATIENT
  Age: 1 Year
  Sex: Male
  Weight: 11.7 kg

DRUGS (1)
  1. MONTELUKAST [Suspect]
     Active Substance: MONTELUKAST SODIUM
     Indication: Multiple allergies
     Dates: start: 20230504, end: 20240405

REACTIONS (5)
  - Therapy interrupted [None]
  - Anger [None]
  - Aggression [None]
  - Bite [None]
  - Product use complaint [None]

NARRATIVE: CASE EVENT DATE: 20240406
